FAERS Safety Report 13004312 (Version 2)
Quarter: 2016Q4

REPORT INFORMATION
  Report Type: Report from Study
  Country: None (occurrence: MX)
  Receive Date: 20161206
  Receipt Date: 20161215
  Transmission Date: 20170207
  Serious: Yes (Hospitalization)
  Sender: FDA-Public Use
  Company Number: MX-ABBVIE-16K-107-1796557-00

PATIENT
  Sex: Female

DRUGS (1)
  1. HUMIRA [Suspect]
     Active Substance: ADALIMUMAB
     Indication: PSORIATIC ARTHROPATHY
     Route: 058
     Dates: start: 20130901

REACTIONS (7)
  - Malaise [Unknown]
  - Insomnia [Unknown]
  - Incorrect dose administered [Unknown]
  - Gastric disorder [Unknown]
  - Abdominal pain [Unknown]
  - Diverticulum [Unknown]
  - Pain [Unknown]
